FAERS Safety Report 8955600 (Version 3)
Quarter: 2014Q1

REPORT INFORMATION
  Report Type: Report from Study
  Country: US (occurrence: US)
  Receive Date: 20121207
  Receipt Date: 20140213
  Transmission Date: 20141002
  Serious: Yes (Death)
  Sender: FDA-Public Use
  Company Number: US-ROCHE-1163829

PATIENT
  Age: 72 Year
  Sex: Female
  Weight: 76.73 kg

DRUGS (9)
  1. AVASTIN [Suspect]
     Indication: METASTASES TO LYMPH NODES
     Route: 042
  2. AVASTIN [Suspect]
     Indication: MALIGNANT MELANOMA
     Route: 042
     Dates: start: 20100223
  3. AVASTIN [Suspect]
     Dosage: SAME DOSE RECIEVED ON 23/MAR/2010
     Route: 042
     Dates: start: 20100309
  4. KYTRIL [Suspect]
     Indication: PRODUCT USED FOR UNKNOWN INDICATION
     Route: 042
  5. ABRAXANE [Concomitant]
     Route: 042
  6. CARBOPLATIN [Concomitant]
     Route: 042
  7. DECADRON [Concomitant]
     Route: 042
  8. DECADRON [Concomitant]
     Route: 042
  9. NEUPOGEN [Concomitant]
     Route: 058

REACTIONS (7)
  - Malignant melanoma [Fatal]
  - Metastases to lymph nodes [Fatal]
  - Metastases to central nervous system [Fatal]
  - Cardiac arrest [Fatal]
  - Off label use [Unknown]
  - Fatigue [Unknown]
  - Muscle spasms [Unknown]
